FAERS Safety Report 7526642-2 (Version None)
Quarter: 2011Q2

REPORT INFORMATION
  Report Type: 
  Country: None (occurrence: None)
  Receive Date: 20110606
  Receipt Date: 20110520
  Transmission Date: 20111010
  Serious: Yes (Hospitalization)
  Sender: FDA-Public Use
  Company Number: FR-NOVOPROD-328711

PATIENT
  Age: 91 Year
  Sex: Female

DRUGS (9)
  1. NOVORAPID [Suspect]
     Indication: TYPE 2 DIABETES MELLITUS
     Dosage: 32 IU, QD
     Route: 058
     Dates: end: 20110307
  2. LANTUS [Suspect]
     Dosage: 26 IU, QD
     Route: 058
  3. LASIX [Concomitant]
  4. RAMIPRIL [Concomitant]
  5. ASPIRIN [Concomitant]
  6. DLI-PREDNISONE [Concomitant]
  7. LANTUS [Suspect]
     Dosage: 22 UNK, UNK
     Route: 058
  8. POTASSIUM CHLORIDE [Concomitant]
  9. CORDARONE [Concomitant]

REACTIONS (3)
  - MALAISE [None]
  - CONFUSIONAL STATE [None]
  - HYPOGLYCAEMIA [None]
